FAERS Safety Report 8399192-1 (Version None)
Quarter: 2012Q2

REPORT INFORMATION
  Report Type: 
  Country: None (occurrence: None)
  Receive Date: 20120531
  Receipt Date: 20120524
  Transmission Date: 20120825
  Serious: Yes (Hospitalization)
  Sender: FDA-Public Use
  Company Number: US-GLAXOSMITHKLINE-A0845269A

PATIENT
  Age: 63 Year
  Sex: Female
  Weight: 62.7 kg

DRUGS (4)
  1. GLUCOPHAGE [Concomitant]
     Dates: start: 20051105
  2. METHOTREXATE [Concomitant]
  3. CELEBREX [Concomitant]
  4. AVANDIA [Suspect]
     Indication: TYPE 2 DIABETES MELLITUS
     Dosage: 4MG TWICE PER DAY
     Route: 048
     Dates: start: 20051105, end: 20080901

REACTIONS (3)
  - CEREBROVASCULAR ACCIDENT [None]
  - ABASIA [None]
  - MYOCARDIAL INFARCTION [None]
